FAERS Safety Report 18633907 (Version 14)
Quarter: 2023Q1

REPORT INFORMATION
  Report Type: Report from Study
  Country: JP (occurrence: JP)
  Receive Date: 20201218
  Receipt Date: 20230214
  Transmission Date: 20230418
  Serious: Yes (Hospitalization)
  Sender: FDA-Public Use
  Company Number: JP-ASTELLAS-2020JP015402

PATIENT
  Age: 77 Year
  Sex: Male

DRUGS (11)
  1. ENZALUTAMIDE [Suspect]
     Active Substance: ENZALUTAMIDE
     Indication: Prostate cancer
     Route: 048
     Dates: start: 20171214, end: 20201007
  2. ENZALUTAMIDE [Suspect]
     Active Substance: ENZALUTAMIDE
     Route: 048
     Dates: start: 20201027, end: 20220607
  3. ENZALUTAMIDE [Suspect]
     Active Substance: ENZALUTAMIDE
     Route: 048
     Dates: start: 20220618
  4. Alosenn [Concomitant]
     Indication: Constipation
     Dosage: UNK UNK, UNKNOWN FREQ.
     Route: 048
     Dates: start: 2013
  5. OLMESARTAN [Concomitant]
     Active Substance: OLMESARTAN
     Indication: Hypertension
     Route: 048
     Dates: start: 20171207
  6. AMLODIPINE [Concomitant]
     Active Substance: AMLODIPINE BESYLATE
     Indication: Hypertension
     Route: 048
     Dates: start: 20171214
  7. MEROPENEM [Concomitant]
     Active Substance: MEROPENEM
     Indication: Gastroenteritis
     Dosage: UNK UNK, UNKNOWN FREQ.
     Route: 042
     Dates: start: 20201008, end: 20201016
  8. MIYA-BM [Concomitant]
     Active Substance: CLOSTRIDIUM BUTYRICUM SPORES STRAIN M-55
     Indication: Gastroenteritis
     Dosage: UNK UNK, UNKNOWN FREQ.
     Route: 048
     Dates: start: 20201008, end: 20201016
  9. VONOPRAZAN FUMARATE [Concomitant]
     Active Substance: VONOPRAZAN FUMARATE
     Indication: Gastritis prophylaxis
     Dosage: UNK UNK, UNKNOWN FREQ.
     Route: 048
     Dates: start: 20201019, end: 20201113
  10. REBAMIPIDE AMEL [Concomitant]
     Indication: Gastritis prophylaxis
     Dosage: UNK UNK, UNKNOWN FREQ.
     Route: 048
     Dates: start: 20201019, end: 20201113
  11. LOXOPROFEN SODIUM [Concomitant]
     Active Substance: LOXOPROFEN SODIUM
     Indication: Arthralgia
     Dosage: UNK UNK, UNKNOWN FREQ.
     Route: 048
     Dates: start: 20210604, end: 20210831

REACTIONS (4)
  - Gastroenteritis [Recovered/Resolved]
  - Diarrhoea [Recovered/Resolved]
  - Medical device site dermatitis [Recovered/Resolved]
  - Arthralgia [Recovered/Resolved]

NARRATIVE: CASE EVENT DATE: 20201006
